FAERS Safety Report 4526555-4 (Version None)
Quarter: 2004Q4

REPORT INFORMATION
  Report Type: 
  Country: None (occurrence: None)
  Receive Date: 20041210
  Receipt Date: 20041122
  Transmission Date: 20050328
  Serious: Yes (Other)
  Sender: FDA-Public Use
  Company Number: 2004100129

PATIENT
  Age: 67 Year
  Sex: Male

DRUGS (4)
  1. BEXTRA [Suspect]
     Indication: ARTHRALGIA
     Dosage: ORAL
     Route: 048
  2. ASPIRIN [Concomitant]
  3. SIMVASTTIN(SIMVASTATIN) [Concomitant]
  4. INFLENZA VACCINE (INFLUENZA VACCINE) [Concomitant]

REACTIONS (1)
  - STEVENS-JOHNSON SYNDROME [None]
